FAERS Safety Report 6606460 (Version 1)
Quarter: 2020Q3

REPORT INFORMATION
  Report Type: Report from Study
  Country: US (occurrence: US)
  Receive Date: 20080404
  Receipt Date: 20080404
  Transmission Date: 20201104
  Serious: Yes (Hospitalization)
  Sender: FDA-Public Use
  Company Number: US-ROCHE-555433

PATIENT
  Age: 79 Year
  Sex: Female

DRUGS (10)
  1. METAGLIP [Concomitant]
     Active Substance: GLIPIZIDE\METFORMIN HYDROCHLORIDE
     Dosage: METAGRIP 5/500
  2. CILOSTAZOL. [Concomitant]
     Active Substance: CILOSTAZOL
  3. FOLIC ACID. [Concomitant]
     Active Substance: FOLIC ACID
  4. IBANDRONIC ACID. [Suspect]
     Active Substance: IBANDRONIC ACID
     Indication: OSTEOPOROSIS
     Route: 065
  5. INSULIN HUMAN NOS [Concomitant]
     Active Substance: INSULIN HUMAN
     Dosage: NOVOLIN 70/30
  6. ATENOLOL. [Concomitant]
     Active Substance: ATENOLOL
  7. NEXIUM [Concomitant]
     Active Substance: ESOMEPRAZOLE MAGNESIUM
  8. ASPIRIN. [Concomitant]
     Active Substance: ASPIRIN
  9. METAGLIP [Concomitant]
     Active Substance: GLIPIZIDE\METFORMIN HYDROCHLORIDE
     Dosage: METAGRIP 5/500
  10. DIOVAN [Concomitant]
     Active Substance: VALSARTAN

REACTIONS (1)
  - Rectal haemorrhage [Unknown]
